FAERS Safety Report 6596334-5 (Version None)
Quarter: 2010Q1

REPORT INFORMATION
  Report Type: 
  Country: None (occurrence: None)
  Receive Date: 20100223
  Receipt Date: 20100212
  Transmission Date: 20100710
  Serious: Yes (Hospitalization, Other)
  Sender: FDA-Public Use
  Company Number: PHEH2009US17837

PATIENT
  Sex: Female
  Weight: 65 kg

DRUGS (1)
  1. EXJADE [Suspect]
     Indication: IRON OVERLOAD
     Dosage: 2500 MG, QD
     Route: 048
     Dates: start: 20081203

REACTIONS (2)
  - CEREBROVASCULAR ACCIDENT [None]
  - GASTROINTESTINAL DISORDER [None]
